FAERS Safety Report 25653689 (Version 2)
Quarter: 2025Q3

REPORT INFORMATION
  Report Type: Report from Study
  Country: US (occurrence: US)
  Receive Date: 20250807
  Receipt Date: 20250811
  Transmission Date: 20251021
  Serious: No
  Sender: TAKEDA
  Company Number: US-TAKEDA-2025TUS069710

PATIENT
  Age: 26 Year
  Sex: Female
  Weight: 66 kg

DRUGS (4)
  1. VEDOLIZUMAB [Suspect]
     Active Substance: VEDOLIZUMAB
     Indication: Colitis ulcerative
     Dosage: 108 MILLIGRAM, Q2WEEKS
     Dates: start: 20240804
  2. VEDOLIZUMAB [Suspect]
     Active Substance: VEDOLIZUMAB
  3. SLYND [Concomitant]
     Active Substance: DROSPIRENONE
     Indication: Contraception
  4. MESALAMINE [Concomitant]
     Active Substance: MESALAMINE

REACTIONS (7)
  - Injection site discharge [Unknown]
  - Injection site swelling [Recovered/Resolved]
  - Incorrect dose administered [Unknown]
  - Injection site rash [Recovered/Resolved]
  - Product administration error [Recovered/Resolved]
  - Inappropriate schedule of product administration [Unknown]
  - Injection site erythema [Recovered/Resolved]

NARRATIVE: CASE EVENT DATE: 20250804
